FAERS Safety Report 9155399 (Version 1)
Quarter: 2013Q1

REPORT INFORMATION
  Report Type: Spontaneous
  Country: BR (occurrence: BR)
  Receive Date: 20130311
  Receipt Date: 20130311
  Transmission Date: 20140127
  Serious: Yes (Other)
  Sender: FDA-Public Use
  Company Number: BR-PFIZER INC-2013079080

PATIENT
  Age: 69 Year
  Sex: Female
  Weight: 67 kg

DRUGS (4)
  1. LIPITOR [Suspect]
     Indication: BLOOD CHOLESTEROL INCREASED
     Dosage: 20 MG (HALF OF 40 MG TABLET), 1X/DAY
     Route: 048
     Dates: start: 201103
  2. BENICAR [Concomitant]
     Indication: BLOOD PRESSURE INCREASED
     Dosage: UNK
  3. INDAPEN [Concomitant]
     Indication: DIURETIC THERAPY
     Dosage: UNK, ALTERNATE DAY
  4. JANUMET [Concomitant]
     Indication: BLOOD GLUCOSE
     Dosage: 50/1000

REACTIONS (1)
  - Arterial occlusive disease [Unknown]
